FAERS Safety Report 4996985-5 (Version None)
Quarter: 2006Q2

REPORT INFORMATION
  Report Type: 
  Country: None (occurrence: None)
  Receive Date: 20060508
  Receipt Date: 20060508
  Transmission Date: 20061013
  Serious: Yes (Hospitalization)
  Sender: FDA-Public Use
  Company Number: None

PATIENT
  Age: 41 Year
  Sex: Male
  Weight: 78.0187 kg

DRUGS (1)
  1. FLEBOGAMMA [Suspect]
     Indication: MULTIFOCAL MOTOR NEUROPATHY
     Dosage: 50 GM Q WEEK IV
     Route: 042
     Dates: start: 20060426, end: 20060426

REACTIONS (7)
  - CHEST PAIN [None]
  - DRUG INEFFECTIVE [None]
  - HEART RATE INCREASED [None]
  - INFUSION RELATED REACTION [None]
  - PULMONARY EMBOLISM [None]
  - RESPIRATORY DISORDER [None]
  - RESPIRATORY RATE INCREASED [None]
